FAERS Safety Report 18453141 (Version 1)
Quarter: 2020Q4

REPORT INFORMATION
  Report Type: Spontaneous
  Country: JP (occurrence: JP)
  Receive Date: 20201102
  Receipt Date: 20201102
  Transmission Date: 20210114
  Serious: Yes (Hospitalization, Other)
  Sender: FDA-Public Use
  Company Number: JP-VALIDUS PHARMACEUTICALS LLC-JP-2020VAL000851

PATIENT

DRUGS (2)
  1. LASIX [Suspect]
     Active Substance: FUROSEMIDE
     Indication: CARDIAC FAILURE CHRONIC
     Dosage: UNK
     Route: 065
  2. LASIX [Suspect]
     Active Substance: FUROSEMIDE
     Dosage: GRADUALLY DECREASED AND DISCONTINUED
     Route: 065

REACTIONS (12)
  - Pneumonia aspiration [Unknown]
  - Sputum increased [Recovering/Resolving]
  - Dysphagia [Recovering/Resolving]
  - Dry mouth [Recovering/Resolving]
  - Physical deconditioning [Recovering/Resolving]
  - Cough [Recovering/Resolving]
  - Dyspnoea [Recovering/Resolving]
  - Dry throat [Recovering/Resolving]
  - Pyrexia [Recovering/Resolving]
  - Wheezing [Recovered/Resolved]
  - Decreased appetite [Recovering/Resolving]
  - Aptyalism [Recovering/Resolving]
